FAERS Safety Report 9660526 (Version 1)
Quarter: 2013Q4

REPORT INFORMATION
  Report Type: Spontaneous
  Country: US (occurrence: US)
  Receive Date: 20131031
  Receipt Date: 20131031
  Transmission Date: 20140711
  Serious: No
  Sender: FDA-Public Use
  Company Number: US-009507513-1310USA014837

PATIENT
  Sex: Female

DRUGS (2)
  1. DULERA [Suspect]
     Indication: ASTHMA
     Dosage: 100MCG/5MCG, ROUTE: ORAL INHALATION
     Route: 055
     Dates: end: 201310
  2. PREDNISONE [Concomitant]

REACTIONS (1)
  - Throat tightness [Recovering/Resolving]
